FAERS Safety Report 9344180 (Version 1)
Quarter: 2013Q2

REPORT INFORMATION
  Report Type: Spontaneous
  Country: SE (occurrence: SE)
  Receive Date: 20130612
  Receipt Date: 20130612
  Transmission Date: 20140414
  Serious: Yes (Disabling, Other)
  Sender: FDA-Public Use
  Company Number: SE-PFIZER INC-2013172731

PATIENT
  Age: 25 Year
  Sex: Male

DRUGS (1)
  1. TETRACYCLINE HCL [Suspect]
     Indication: ACNE
     Dosage: 100 MG, DAILY
     Route: 048

REACTIONS (1)
  - Neuronal neuropathy [Recovering/Resolving]
